FAERS Safety Report 23152834 (Version 1)
Quarter: 2023Q4

REPORT INFORMATION
  Report Type: Spontaneous
  Country: US (occurrence: US)
  Receive Date: 20231107
  Receipt Date: 20231107
  Transmission Date: 20240109
  Serious: Yes (Other)
  Sender: FDA-Public Use
  Company Number: US-ABBVIE-5476463

PATIENT
  Sex: Female

DRUGS (1)
  1. REFRESH OPTIVE ADVANCED [Suspect]
     Active Substance: CARBOXYMETHYLCELLULOSE SODIUM\GLYCERIN\POLYSORBATE 80
     Indication: Dry eye
     Dosage: GLYCERIN 10MG/ML; POLY 80 5MG/ML; CMC 5MG/ML SOLUTION MULTI DOSE
     Route: 047

REACTIONS (2)
  - Macular degeneration [Unknown]
  - Glaucoma [Unknown]
